FAERS Safety Report 7423727-6 (Version None)
Quarter: 2011Q2

REPORT INFORMATION
  Report Type: 
  Country: None (occurrence: None)
  Receive Date: 20110411
  Receipt Date: 20110324
  Transmission Date: 20111010
  Serious: Yes (Hospitalization)
  Sender: FDA-Public Use
  Company Number: GER/GER/11/0017943

PATIENT
  Age: 74 Year
  Sex: Female
  Weight: 54.4 kg

DRUGS (9)
  1. SIMVASTATIN [Suspect]
     Indication: HYPERLIPIDAEMIA
     Dosage: 40 MG, 1 IN 1 D, ORAL
     Route: 048
     Dates: end: 20110223
  2. VERAPAMIL [Concomitant]
  3. PANTOPRAZOLE SODIUM [Concomitant]
  4. PREDNISOLONE [Suspect]
     Indication: TEMPORAL ARTERITIS
     Dosage: 25 MG, 1 IN 1 D, ORAL, 17.5 MG
     Route: 048
     Dates: start: 20101001, end: 20110223
  5. ENALAPRIL MALEATE [Concomitant]
  6. CALCILAC KT (LEKOVIT CA) [Concomitant]
  7. PENTALONG (PENTAERITHRITYL [Concomitant]
  8. ASPIRIN [Concomitant]
  9. ACLASTA (ZOLEDRONIC ACID) [Concomitant]

REACTIONS (4)
  - MYOPATHY [None]
  - CUSHING'S SYNDROME [None]
  - AGEUSIA [None]
  - VISUAL IMPAIRMENT [None]
